FAERS Safety Report 24909991 (Version 1)
Quarter: 2025Q1

REPORT INFORMATION
  Report Type: Spontaneous
  Country: US (occurrence: US)
  Receive Date: 20250131
  Receipt Date: 20250131
  Transmission Date: 20250409
  Serious: No
  Sender: PERRIGO
  Company Number: US-PERRIGO-24US011394

PATIENT
  Age: 19 Year
  Weight: 63.492 kg

DRUGS (2)
  1. CETIRIZINE HYDROCHLORIDE [Suspect]
     Active Substance: CETIRIZINE HYDROCHLORIDE
     Indication: Wrong product administered
     Route: 048
     Dates: start: 20241210, end: 20241210
  2. CETIRIZINE HYDROCHLORIDE [Suspect]
     Active Substance: CETIRIZINE HYDROCHLORIDE
     Indication: Product used for unknown indication
     Route: 048
     Dates: start: 20241210, end: 20241210

REACTIONS (3)
  - Somnolence [Unknown]
  - Overdose [Unknown]
  - Wrong product administered [Unknown]

NARRATIVE: CASE EVENT DATE: 20241210
